FAERS Safety Report 13976255 (Version 1)
Quarter: 2017Q3

REPORT INFORMATION
  Report Type: Report from Study
  Country: DE (occurrence: DE)
  Receive Date: 20170915
  Receipt Date: 20170915
  Transmission Date: 20171128
  Serious: Yes (Hospitalization)
  Sender: FDA-Public Use
  Company Number: DE-ROCHE-1992464

PATIENT
  Age: 67 Year
  Sex: Female
  Weight: 110 kg

DRUGS (1)
  1. TOCILIZUMAB. [Suspect]
     Active Substance: TOCILIZUMAB
     Indication: RHEUMATOID ARTHRITIS
     Route: 058
     Dates: start: 20160607, end: 20170822

REACTIONS (1)
  - Extremity necrosis [Unknown]

NARRATIVE: CASE EVENT DATE: 20170815
